FAERS Safety Report 4738044-2 (Version None)
Quarter: 2005Q3

REPORT INFORMATION
  Report Type: 
  Country: None (occurrence: None)
  Receive Date: 20050805
  Receipt Date: 20050805
  Transmission Date: 20060218
  Serious: Yes (Hospitalization)
  Sender: FDA-Public Use
  Company Number: None

PATIENT
  Age: 63 Year
  Sex: Female
  Weight: 88.5 kg

DRUGS (7)
  1. INTEGRILIN [Suspect]
     Indication: CHEST DISCOMFORT
     Dosage: 150 MG IV
     Route: 042
     Dates: start: 20050409
  2. INTEGRILIN [Suspect]
     Indication: CORONARY ARTERY DISEASE
     Dosage: 150 MG IV
     Route: 042
     Dates: start: 20050409
  3. ASPIRIN [Suspect]
     Dosage: 325 MG PO
     Route: 048
     Dates: start: 20050409
  4. PLAVIX [Suspect]
     Dosage: PO Q AM
     Route: 048
  5. INTEGRILIN [Concomitant]
  6. ASPIRIN [Concomitant]
  7. PLAVIX [Concomitant]

REACTIONS (4)
  - CEREBRAL HAEMORRHAGE [None]
  - GASTROINTESTINAL DISORDER [None]
  - HEADACHE [None]
  - NAUSEA [None]
